FAERS Safety Report 7764958-5 (Version None)
Quarter: 2011Q3

REPORT INFORMATION
  Report Type: 
  Country: None (occurrence: None)
  Receive Date: 20110921
  Receipt Date: 20110916
  Transmission Date: 20111222
  Serious: Yes (Other)
  Sender: FDA-Public Use
  Company Number: BR-PFIZER INC-2011219918

PATIENT
  Age: 60 Year
  Sex: Male

DRUGS (2)
  1. LIPITOR [Suspect]
     Indication: BLOOD CHOLESTEROL
     Dosage: 40 MG (ONE TABLET), 1X/DAY
     Route: 048
     Dates: start: 20060616, end: 20080101
  2. ATORVASTATIN CALCIUM [Suspect]
     Indication: BLOOD CHOLESTEROL
     Dosage: 40 MG (ONE TABLET), 1X/DAY
     Route: 048
     Dates: start: 20090101

REACTIONS (1)
  - OSTEOARTHRITIS [None]
